FAERS Safety Report 6158603-2 (Version None)
Quarter: 2009Q2

REPORT INFORMATION
  Report Type: 
  Country: None (occurrence: None)
  Receive Date: 20090417
  Receipt Date: 20090415
  Transmission Date: 20091009
  Serious: Yes (Hospitalization, Other)
  Sender: FDA-Public Use
  Company Number: US-ROXANE LABORATORIES, INC.-2009-RO-00382RO

PATIENT
  Age: 41 Year
  Sex: Female

DRUGS (11)
  1. LIDOCAINE [Suspect]
     Indication: COMPLEX REGIONAL PAIN SYNDROME
     Route: 061
  2. LIDOCAINE [Suspect]
     Route: 042
  3. MORPHINE [Suspect]
     Indication: COMPLEX REGIONAL PAIN SYNDROME
  4. MIDAZOLAM HCL [Suspect]
     Indication: PROPHYLAXIS
  5. KETAMINE HCL [Suspect]
     Indication: COMPLEX REGIONAL PAIN SYNDROME
     Route: 042
     Dates: start: 20061101
  6. LABETALOL HCL [Suspect]
     Indication: HYPERTENSION
  7. HYDRALAZINE HCL [Suspect]
     Indication: HYPERTENSION
  8. AMITRIPTLINE HYDROCHLORIDE TAB [Suspect]
     Indication: COMPLEX REGIONAL PAIN SYNDROME
  9. GABAPENTIN [Suspect]
     Indication: COMPLEX REGIONAL PAIN SYNDROME
  10. BISPHOSPHONATES [Suspect]
     Indication: COMPLEX REGIONAL PAIN SYNDROME
  11. CALCITONIN [Suspect]
     Indication: COMPLEX REGIONAL PAIN SYNDROME

REACTIONS (7)
  - COMPLEX REGIONAL PAIN SYNDROME [None]
  - DRUG INEFFECTIVE [None]
  - EMOTIONAL DISORDER [None]
  - EUPHORIC MOOD [None]
  - HYPERTENSION [None]
  - MENINGITIS CHEMICAL [None]
  - MIGRAINE [None]
